FAERS Safety Report 5950034-0 (Version None)
Quarter: 2008Q4

REPORT INFORMATION
  Report Type: 
  Country: None (occurrence: None)
  Receive Date: 20081111
  Receipt Date: 20080814
  Transmission Date: 20090506
  Serious: No
  Sender: FDA-Public Use
  Company Number: US-BRISTOL-MYERS SQUIBB COMPANY-14302715

PATIENT
  Age: 70 Year
  Sex: Male
  Weight: 60 kg

DRUGS (11)
  1. SUSTIVA [Suspect]
     Dosage: 600MG FOR 3 YEARS. DOSAGE DECREASED TO 300MG (HALF OF THE TABLET)
  2. ATRIPLA [Suspect]
  3. TRIZIVIR [Concomitant]
  4. SINGULAIR [Concomitant]
  5. TOPROL-XL [Concomitant]
  6. NEURONTIN [Concomitant]
  7. TESTIM [Concomitant]
  8. SEROSTIM [Concomitant]
  9. XOPENEX [Concomitant]
  10. ASPIRIN [Concomitant]
  11. SPIRIVA [Concomitant]

REACTIONS (5)
  - ABNORMAL DREAMS [None]
  - BACK PAIN [None]
  - DIZZINESS [None]
  - DRY MOUTH [None]
  - SOMNOLENCE [None]
